FAERS Safety Report 4435068-X (Version None)
Quarter: 2004Q3

REPORT INFORMATION
  Report Type: 
  Country: None (occurrence: None)
  Receive Date: 20040827
  Receipt Date: 20040819
  Transmission Date: 20050211
  Serious: Yes (Hospitalization, Disabling, Other)
  Sender: FDA-Public Use
  Company Number: GB-JNJFOC-20040602726

PATIENT
  Sex: Male

DRUGS (4)
  1. RISPERDAL [Suspect]
     Route: 049
  2. RISPERDAL [Suspect]
     Route: 049
  3. RISPERDAL [Suspect]
     Route: 049
  4. RISPERDAL [Suspect]
     Indication: DRUG USE FOR UNKNOWN INDICATION
     Route: 049

REACTIONS (14)
  - ASTHENIA [None]
  - FAECAL INCONTINENCE [None]
  - FEELING ABNORMAL [None]
  - FEELING DRUNK [None]
  - FLUSHING [None]
  - HALLUCINATION [None]
  - HYPERHIDROSIS [None]
  - MUSCLE RIGIDITY [None]
  - RETINAL SCAR [None]
  - URINARY INCONTINENCE [None]
  - VERBAL ABUSE [None]
  - VISUAL ACUITY REDUCED [None]
  - VISUAL DISTURBANCE [None]
  - WEIGHT INCREASED [None]
